FAERS Safety Report 4928112-4 (Version None)
Quarter: 2006Q1

REPORT INFORMATION
  Report Type: 
  Country: None (occurrence: None)
  Receive Date: 20060228
  Receipt Date: 19890216
  Transmission Date: 20060701
  Serious: Yes (Death)
  Sender: FDA-Public Use
  Company Number: FR-ABBOTT-89P-056-0064678-00

PATIENT
  Age: 24 Year
  Sex: Male

DRUGS (4)
  1. DEPAKENE [Suspect]
     Indication: EPILEPSY
     Route: 048
  2. DEPAKENE [Suspect]
     Indication: HEMIPLEGIA
  3. TRIAZOLAM [Concomitant]
     Indication: DRUG USE FOR UNKNOWN INDICATION
  4. ALCOHOL [Concomitant]
     Indication: DRUG USE FOR UNKNOWN INDICATION

REACTIONS (4)
  - COMA [None]
  - HYPOGLYCAEMIA [None]
  - INTENTIONAL DRUG MISUSE [None]
  - SUICIDE ATTEMPT [None]
